FAERS Safety Report 4501381-0 (Version None)
Quarter: 2004Q4

REPORT INFORMATION
  Report Type: 
  Country: None (occurrence: None)
  Receive Date: 20041110
  Receipt Date: 20041101
  Transmission Date: 20050328
  Serious: Yes (Other)
  Sender: FDA-Public Use
  Company Number: 2004242439US

PATIENT

DRUGS (8)
  1. BEXTRA [Suspect]
     Dosage: ORAL
     Route: 048
  2. ... [Concomitant]
  3. .. [Concomitant]
  4. .. [Concomitant]
  5. .. [Concomitant]
  6. ,, [Concomitant]
  7. .. [Concomitant]
  8. .. [Concomitant]

REACTIONS (1)
  - SKIN REACTION [None]
